FAERS Safety Report 6753013-9 (Version None)
Quarter: 2010Q2

REPORT INFORMATION
  Report Type: 
  Country: None (occurrence: None)
  Receive Date: 20100602
  Receipt Date: 20100602
  Transmission Date: 20101027
  Serious: Yes (Other)
  Sender: FDA-Public Use
  Company Number: None

PATIENT
  Age: 42 Year
  Sex: Female

DRUGS (1)
  1. ISOVUE-300 [Suspect]
     Indication: BREAST CANCER
     Dosage: 100 ML 2.5 ML/5CC AC
     Dates: start: 20100429

REACTIONS (4)
  - CONTRAST MEDIA REACTION [None]
  - EYE PRURITUS [None]
  - NASAL CONGESTION [None]
  - ORAL PRURITUS [None]
